FAERS Safety Report 4398012-X (Version None)
Quarter: 2004Q3

REPORT INFORMATION
  Report Type: 
  Country: None (occurrence: None)
  Receive Date: 20040713
  Receipt Date: 20040713
  Transmission Date: 20050211
  Serious: No
  Sender: FDA-Public Use
  Company Number: None

PATIENT
  Age: 14 Year
  Sex: Male
  Weight: 59 kg

DRUGS (6)
  1. LEUKINE [Suspect]
     Indication: EWING'S SARCOMA
     Dosage: 500 MCG SQ QD
     Dates: start: 20040711
  2. LEUKINE [Suspect]
     Indication: HAEMATOPOIETIC STEM CELL MOBILISATION
     Dosage: 500 MCG SQ QD
     Dates: start: 20040711
  3. ARANESP [Concomitant]
  4. ACYCLOVIR [Concomitant]
  5. BACTRIM [Concomitant]
  6. PHORESIS CATH [Concomitant]

REACTIONS (2)
  - INJECTION SITE PRURITUS [None]
  - INJECTION SITE REACTION [None]
